FAERS Safety Report 9036826 (Version 1)
Quarter: 2013Q1

REPORT INFORMATION
  Report Type: Spontaneous
  Country: US (occurrence: None)
  Receive Date: 20130123
  Receipt Date: 20130123
  Transmission Date: 20140127
  Serious: No
  Sender: FDA-Public Use
  Company Number: None

PATIENT
  Age: 20 Year
  Sex: Female

DRUGS (2)
  1. TREXIMET [Suspect]
     Indication: MIGRAINE
     Route: 048
     Dates: start: 20080101, end: 20120101
  2. SPRINTEC [Concomitant]

REACTIONS (2)
  - Muscle tightness [None]
  - Paraesthesia [None]
